FAERS Safety Report 13505835 (Version 1)
Quarter: 2017Q2

REPORT INFORMATION
  Report Type: Spontaneous
  Country: CN (occurrence: CN)
  Receive Date: 20170502
  Receipt Date: 20170502
  Transmission Date: 20170830
  Serious: Yes (Other)
  Sender: FDA-Public Use
  Company Number: CN-BAUSCH-BL-2017-011907

PATIENT
  Age: 68 Year
  Sex: Male

DRUGS (4)
  1. DEXAMETHASONE. [Suspect]
     Active Substance: DEXAMETHASONE
     Dosage: ON DAYS 1, 2, 4, 5, 8, 9, 11,AND 12
     Route: 065
     Dates: start: 201304
  2. CYCLOPHOSPHAMIDE. [Concomitant]
     Active Substance: CYCLOPHOSPHAMIDE
     Indication: LUNG ADENOCARCINOMA STAGE I
     Dosage: DAYS 1-5
     Dates: start: 2013
  3. DEXAMETHASONE. [Suspect]
     Active Substance: DEXAMETHASONE
     Indication: LUNG ADENOCARCINOMA STAGE I
     Dosage: DAYS 1-5
     Route: 065
     Dates: start: 2013
  4. BORTEZOMIB [Suspect]
     Active Substance: BORTEZOMIB
     Indication: LUNG ADENOCARCINOMA STAGE I
     Dosage: DAYS 1, 4, 8, AND 11 FROM START OF TREATMENT
     Route: 065
     Dates: start: 201304

REACTIONS (1)
  - Neuropathy peripheral [Unknown]

NARRATIVE: CASE EVENT DATE: 2013
